FAERS Safety Report 12495307 (Version 2)
Quarter: 2016Q3

REPORT INFORMATION
  Report Type: Spontaneous
  Country: US (occurrence: US)
  Receive Date: 20160624
  Receipt Date: 20160815
  Transmission Date: 20161109
  Serious: No
  Sender: FDA-Public Use
  Company Number: US-PFIZER INC-2016309908

PATIENT
  Age: 72 Year
  Sex: Male
  Weight: 100 kg

DRUGS (2)
  1. SILVADENE [Suspect]
     Active Substance: SILVER SULFADIAZINE
     Indication: RASH MACULAR
     Dosage: APPLIED A LITTLE CREAM TO HIS HAND A COUPLE OF TIMES
     Dates: start: 2016, end: 201605
  2. SILVADENE [Suspect]
     Active Substance: SILVER SULFADIAZINE
     Indication: SOLAR LENTIGO

REACTIONS (1)
  - Drug ineffective for unapproved indication [Not Recovered/Not Resolved]

NARRATIVE: CASE EVENT DATE: 2016
